FAERS Safety Report 5966979-1 (Version None)
Quarter: 2008Q4

REPORT INFORMATION
  Report Type: 
  Country: None (occurrence: None)
  Receive Date: 20081125
  Receipt Date: 20081020
  Transmission Date: 20090506
  Serious: No
  Sender: FDA-Public Use
  Company Number: US-AMGEN-KDL314437

PATIENT
  Sex: Female

DRUGS (16)
  1. ENBREL [Suspect]
     Indication: ANKYLOSING SPONDYLITIS
     Dates: start: 20080801
  2. UNSPECIFIED HERBAL PRODUCT [Concomitant]
  3. BUPROPION HCL [Concomitant]
  4. LEXAPRO [Concomitant]
  5. LISINOPRIL [Concomitant]
  6. LEVOTHYROXINE SODIUM [Concomitant]
  7. HYDROCODONE BITARTRATE [Concomitant]
  8. ALBUTEROL [Concomitant]
  9. OMEPRAZOLE [Concomitant]
  10. CRESTOR [Concomitant]
  11. ASCORBIC ACID [Concomitant]
  12. VITAMIN B [Concomitant]
  13. GLUCOSAMINE [Concomitant]
  14. CALCIUM [Concomitant]
  15. MAGNESIUM SULFATE [Concomitant]
  16. ZINC [Concomitant]

REACTIONS (2)
  - LUNG INFECTION [None]
  - SINUSITIS [None]
